FAERS Safety Report 4413198-6 (Version None)
Quarter: 2004Q3

REPORT INFORMATION
  Report Type: 
  Country: None (occurrence: None)
  Receive Date: 20040802
  Receipt Date: 20040802
  Transmission Date: 20050211
  Serious: Yes (Death, Life-Threatening, Hospitalization)
  Sender: FDA-Public Use
  Company Number: None

PATIENT
  Age: 53 Year
  Sex: Female
  Weight: 52.4 kg

DRUGS (16)
  1. AZATHIOPRINE [Suspect]
     Indication: MYASTHENIA GRAVIS
     Dosage: 50 MG DAILY ORAL
     Route: 048
  2. PRILOSEC [Concomitant]
  3. METFORMIN HCL [Concomitant]
  4. AMITRIPTYLINE HCL [Concomitant]
  5. LIPITOR [Concomitant]
  6. ISOSORBIDE MONONITRATE [Concomitant]
  7. SINGULAIR [Concomitant]
  8. BRETHINE [Concomitant]
  9. TOPAMAX [Concomitant]
  10. IRON SULFATETHIAMIN COMPOUND TAB [Concomitant]
  11. M.V.I. [Concomitant]
  12. NEUTRAPHOS [Concomitant]
  13. ALBUTEROL [Concomitant]
  14. ATROVENT NEBS [Concomitant]
  15. LASIX [Concomitant]
  16. ZESTRIL [Concomitant]

REACTIONS (10)
  - ASTHENIA [None]
  - FEBRILE NEUTROPENIA [None]
  - ISCHAEMIC HEPATITIS [None]
  - MALAISE [None]
  - MULTI-ORGAN FAILURE [None]
  - NAUSEA [None]
  - PANCYTOPENIA [None]
  - RENAL FAILURE ACUTE [None]
  - SEPSIS [None]
  - VOMITING [None]
